FAERS Safety Report 12560148 (Version 1)
Quarter: 2016Q3

REPORT INFORMATION
  Report Type: Spontaneous
  Country: US (occurrence: US)
  Receive Date: 20160715
  Receipt Date: 20160715
  Transmission Date: 20161109
  Serious: No
  Sender: FDA-Public Use
  Company Number: US-JNJFOC-20160620694

PATIENT
  Age: 25 Year
  Sex: Male
  Weight: 81.65 kg

DRUGS (4)
  1. RITALIN [Concomitant]
     Active Substance: METHYLPHENIDATE HYDROCHLORIDE
     Indication: PRODUCT USED FOR UNKNOWN INDICATION
     Route: 065
  2. MENS ROGAINE EXTRA STRENGTH [Suspect]
     Active Substance: MINOXIDIL
     Route: 061
  3. MENS ROGAINE EXTRA STRENGTH [Suspect]
     Active Substance: MINOXIDIL
     Indication: PROPHYLAXIS
     Dosage: USE LESS THAN A HALF A CAP.USING SINCE 2014 OFF AND ON.
     Route: 061
  4. ATIVAN [Concomitant]
     Active Substance: LORAZEPAM
     Indication: PRODUCT USED FOR UNKNOWN INDICATION
     Route: 065

REACTIONS (6)
  - Product use issue [Unknown]
  - Off label use [Unknown]
  - Erythema [Unknown]
  - Expired product administered [Unknown]
  - Dry skin [Unknown]
  - Swelling face [Unknown]
